FAERS Safety Report 10655393 (Version 1)
Quarter: 2014Q4

REPORT INFORMATION
  Report Type: Spontaneous
  Country: US (occurrence: None)
  Receive Date: 20141215
  Receipt Date: 20141215
  Transmission Date: 20150529
  Serious: No
  Sender: FDA-Public Use
  Company Number: None

PATIENT
  Age: 37 Year
  Sex: Female
  Weight: 63.5 kg

DRUGS (1)
  1. CIPRO [Suspect]
     Active Substance: CIPROFLOXACIN HYDROCHLORIDE
     Indication: URINARY TRACT INFECTION
     Dosage: CIPRO 1 250 MG PILL TWICE DAILY TAKEN BY MOUTH
     Route: 048
     Dates: start: 20141212, end: 20141212

REACTIONS (11)
  - Gait disturbance [None]
  - Insomnia [None]
  - Fatigue [None]
  - Euphoric mood [None]
  - Polydipsia [None]
  - Nightmare [None]
  - Abdominal pain upper [None]
  - Disturbance in attention [None]
  - Heart rate increased [None]
  - Confusional state [None]
  - Dizziness [None]

NARRATIVE: CASE EVENT DATE: 20141212
